FAERS Safety Report 4863199-9 (Version None)
Quarter: 2005Q4

REPORT INFORMATION
  Report Type: 
  Country: None (occurrence: None)
  Receive Date: 20051201
  Receipt Date: 20050722
  Transmission Date: 20060501
  Serious: No
  Sender: FDA-Public Use
  Company Number: 2005PV000535

PATIENT
  Age: 63 Year
  Sex: Female
  Weight: 78.0187 kg

DRUGS (9)
  1. BYETTA [Suspect]
     Indication: GLUCOSE TOLERANCE IMPAIRED
     Dosage: 5 MCG;BID;SC
     Route: 058
     Dates: start: 20050705
  2. GLUCOPHAGE [Concomitant]
  3. PREMPRO [Concomitant]
  4. AMBIEN [Concomitant]
  5. THYROID TAB [Concomitant]
  6. LIPITOR [Concomitant]
  7. FAMVIR [Concomitant]
  8. MVI PRENATAL [Concomitant]
  9. REMICADE [Concomitant]

REACTIONS (3)
  - BLOOD TRIGLYCERIDES INCREASED [None]
  - DECREASED APPETITE [None]
  - INJECTION SITE BRUISING [None]
